APPROVED DRUG PRODUCT: ROSUVASTATIN CALCIUM
Active Ingredient: ROSUVASTATIN CALCIUM
Strength: EQ 40MG BASE
Dosage Form/Route: TABLET;ORAL
Application: A079161 | Product #004
Applicant: STRIDES PHARMA GLOBAL PTE LTD
Approved: Jul 19, 2016 | RLD: No | RS: No | Type: DISCN